FAERS Safety Report 11397582 (Version 1)
Quarter: 2015Q3

REPORT INFORMATION
  Report Type: Spontaneous
  Country: IT (occurrence: FR)
  Receive Date: 20150819
  Receipt Date: 20150819
  Transmission Date: 20151125
  Serious: Yes (Life-Threatening, Hospitalization)
  Sender: FDA-Public Use
  Company Number: FR-FRI-1000079015

PATIENT
  Age: 84 Year
  Sex: Female

DRUGS (11)
  1. ALDACTONE [Concomitant]
     Active Substance: SPIRONOLACTONE
  2. ELIQUIS [Concomitant]
     Active Substance: APIXABAN
     Dates: end: 20150712
  3. FLECAINE [Suspect]
     Active Substance: FLECAINIDE
     Dosage: 200 MG
     Route: 048
     Dates: start: 20150630, end: 20150712
  4. LEVOTHYROX [Concomitant]
     Active Substance: LEVOTHYROXINE
  5. ATROVENT [Concomitant]
     Active Substance: IPRATROPIUM BROMIDE
  6. NEBIVOLOL. [Suspect]
     Active Substance: NEBIVOLOL
     Indication: PRODUCT USED FOR UNKNOWN INDICATION
     Dosage: 2.5 MG
     Route: 048
     Dates: end: 20150712
  7. UVEDOSE [Concomitant]
     Active Substance: CHOLECALCIFEROL
  8. FLECAINE [Suspect]
     Active Substance: FLECAINIDE
     Indication: PRODUCT USED FOR UNKNOWN INDICATION
     Route: 048
     Dates: start: 201503, end: 20150629
  9. TAHOR [Concomitant]
     Active Substance: ATORVASTATIN CALCIUM
  10. BECLOSPIN [Concomitant]
     Active Substance: BECLOMETHASONE DIPROPIONATE
  11. LASILIX [Concomitant]
     Active Substance: FUROSEMIDE

REACTIONS (4)
  - Arrhythmia [Recovered/Resolved]
  - General physical health deterioration [Unknown]
  - Cardiac failure [Recovered/Resolved]
  - Electrocardiogram QRS complex prolonged [Recovered/Resolved]

NARRATIVE: CASE EVENT DATE: 20150712
